FAERS Safety Report 22253235 (Version 1)
Quarter: 2023Q2

REPORT INFORMATION
  Report Type: Spontaneous
  Country: GB (occurrence: GB)
  Receive Date: 20230426
  Receipt Date: 20230426
  Transmission Date: 20230721
  Serious: Yes (Other)
  Sender: FDA-Public Use
  Company Number: None

PATIENT
  Sex: Male

DRUGS (1)
  1. SCOPOLAMINE [Suspect]
     Active Substance: SCOPOLAMINE
     Indication: Saliva altered
     Dosage: DOSE (NUMBER) 1DOSE UNIT: MG MILLIGRAM(S) (PATCH, PL 00116/0718)
     Route: 065

REACTIONS (2)
  - Ophthalmic migraine [Unknown]
  - Withdrawal syndrome [Unknown]
